FAERS Safety Report 11230465 (Version 1)
Quarter: 2015Q2

REPORT INFORMATION
  Report Type: Spontaneous
  Country: TW (occurrence: None)
  Receive Date: 20150629
  Receipt Date: 20150629
  Transmission Date: 20150821
  Serious: Yes (Hospitalization, Other)
  Sender: FDA-Public Use
  Company Number: ADR-2015UNK136

PATIENT
  Age: 45 Year
  Sex: Female

DRUGS (7)
  1. MITRAZAPINE [Concomitant]
  2. SULPIRIDE [Concomitant]
     Active Substance: SULPIRIDE
  3. QUETIAPINE [Concomitant]
     Active Substance: QUETIAPINE
  4. LORAZEPAM. [Concomitant]
     Active Substance: LORAZEPAM
  5. ZALEPLON. [Concomitant]
     Active Substance: ZALEPLON
  6. HYDROXYZINE HCL TABLET [Suspect]
     Active Substance: HYDROXYZINE HYDROCHLORIDE
     Route: 048
  7. FLURAZEPAM [Concomitant]
     Active Substance: FLURAZEPAM\FLURAZEPAM HYDROCHLORIDE

REACTIONS (2)
  - Torsade de pointes [None]
  - Toxicity to various agents [None]
